FAERS Safety Report 4834838-3 (Version None)
Quarter: 2005Q4

REPORT INFORMATION
  Report Type: 
  Country: None (occurrence: None)
  Receive Date: 20051122
  Receipt Date: 20051117
  Transmission Date: 20060501
  Serious: Yes (Hospitalization, Disabling)
  Sender: FDA-Public Use
  Company Number: US-JNJFOC-20050605232

PATIENT
  Sex: Female

DRUGS (4)
  1. EXTRA STRENGTH TYLENOL [Suspect]
  2. EXTRA STRENGTH TYLENOL [Suspect]
     Dosage: ^AS DIRECTED ON PACKAGE^
  3. EXTRA STRENGTH TYLENOL [Suspect]
     Indication: MIGRAINE
  4. IMITREX [Concomitant]

REACTIONS (14)
  - CHOLANGITIS SCLEROSING [None]
  - COLITIS [None]
  - ENTEROCOCCAL INFECTION [None]
  - HAEMANGIOMA OF LIVER [None]
  - HEPATIC FAILURE [None]
  - HEPATITIS B SURFACE ANTIGEN POSITIVE [None]
  - HEPATOCELLULAR DAMAGE [None]
  - ILEITIS [None]
  - LIVER TRANSPLANT [None]
  - MUSCLE ATROPHY [None]
  - OSTEOPENIA [None]
  - PRURITUS [None]
  - STAPHYLOCOCCAL INFECTION [None]
  - STREPTOCOCCAL INFECTION [None]
